FAERS Safety Report 5780826-2 (Version None)
Quarter: 2008Q2

REPORT INFORMATION
  Report Type: 
  Country: None (occurrence: None)
  Receive Date: 20080620
  Receipt Date: 20080611
  Transmission Date: 20081010
  Serious: Yes (Other)
  Sender: FDA-Public Use
  Company Number: BR-BAYER-BR-2007-034193

PATIENT
  Age: 24 Year
  Sex: Female

DRUGS (3)
  1. YASMIN [Suspect]
     Indication: ORAL CONTRACEPTION
     Route: 048
     Dates: start: 20060701, end: 20080301
  2. BROMAZEPAM [Concomitant]
     Indication: DRUG USE FOR UNKNOWN INDICATION
     Route: 048
     Dates: start: 20070101, end: 20070101
  3. SERTRALINE HYDROCHLORIDE [Concomitant]
     Indication: NERVOUS SYSTEM DISORDER
     Dosage: TOTAL DAILY DOSE: 200 MG
     Route: 048
     Dates: start: 20060101

REACTIONS (9)
  - DIARRHOEA [None]
  - DIZZINESS [None]
  - FIBROADENOMA OF BREAST [None]
  - INSOMNIA [None]
  - NAUSEA [None]
  - NO ADVERSE EVENT [None]
  - OVARIAN CYST [None]
  - VOMITING [None]
  - WEIGHT INCREASED [None]
